FAERS Safety Report 9648742 (Version 1)
Quarter: 2013Q4

REPORT INFORMATION
  Report Type: Spontaneous
  Country: US (occurrence: None)
  Receive Date: 20131025
  Receipt Date: 20131025
  Transmission Date: 20140711
  Serious: Yes (Hospitalization)
  Sender: FDA-Public Use
  Company Number: None

PATIENT
  Age: 43 Year
  Sex: Male
  Weight: 95 kg

DRUGS (3)
  1. TRAZODONE [Suspect]
     Dates: start: 20110621
  2. QUETIAPINE [Concomitant]
  3. SERTRALINE [Concomitant]

REACTIONS (4)
  - Mental status changes [None]
  - Overdose [None]
  - Hypotension [None]
  - Acidosis [None]
